FAERS Safety Report 21363040 (Version 3)
Quarter: 2023Q1

REPORT INFORMATION
  Report Type: Spontaneous
  Country: US (occurrence: US)
  Receive Date: 20220922
  Receipt Date: 20230313
  Transmission Date: 20230417
  Serious: No
  Sender: FDA-Public Use
  Company Number: US-PHARMAESSENTIA CORPORATION-US-2022-PEC-000673

PATIENT

DRUGS (4)
  1. BESREMI [Suspect]
     Active Substance: ROPEGINTERFERON ALFA-2B-NJFT
     Indication: Polycythaemia vera
     Dosage: 100 MCG, EVERY TWO WEEKS
     Route: 058
     Dates: start: 20220523
  2. BESREMI [Suspect]
     Active Substance: ROPEGINTERFERON ALFA-2B-NJFT
     Dosage: UNK
     Route: 058
  3. BESREMI [Suspect]
     Active Substance: ROPEGINTERFERON ALFA-2B-NJFT
     Dosage: 500 MCG
     Route: 058
  4. BESREMI [Suspect]
     Active Substance: ROPEGINTERFERON ALFA-2B-NJFT
     Dosage: 500 MCG
     Route: 058
     Dates: start: 20230131

REACTIONS (13)
  - Stress [Not Recovered/Not Resolved]
  - Blood test abnormal [Recovered/Resolved]
  - Haemorrhoids [Not Recovered/Not Resolved]
  - Anal fissure [Unknown]
  - Surgery [Unknown]
  - COVID-19 [Unknown]
  - Haematocrit abnormal [Recovered/Resolved]
  - Pelvic pain [Not Recovered/Not Resolved]
  - White blood cell count decreased [Recovered/Resolved]
  - Dizziness [Unknown]
  - Poor quality sleep [Unknown]
  - Nasal congestion [Unknown]
  - Platelet count decreased [Recovered/Resolved]
